FAERS Safety Report 7559786-X (Version None)
Quarter: 2011Q2

REPORT INFORMATION
  Report Type: 
  Country: None (occurrence: None)
  Receive Date: 20110621
  Receipt Date: 20110611
  Transmission Date: 20111010
  Serious: Yes (Life-Threatening, Hospitalization)
  Sender: FDA-Public Use
  Company Number: US-ROCHE-783255

PATIENT
  Age: 71 Year
  Sex: Female
  Weight: 52 kg

DRUGS (3)
  1. BEVACIZUMAB [Suspect]
     Indication: OVARIAN EPITHELIAL CANCER
     Dosage: FREQ: OVER 30-90 MINUTES ON DAY 1 OF CYCLES 2+, LAST DOSE PRIOR TO SAE: 29 MARCH 2011.
     Route: 042
     Dates: start: 20110214
  2. PACLITAXEL [Suspect]
     Indication: OVARIAN EPITHELIAL CANCER
     Dosage: FREQ: OVER 1 HOUR ON DAYS 1, 8 AND 15 (CYCLE 1-6), LAST DOSE PRIOR TO SAE: 11 APRIL 2011.
     Route: 042
     Dates: start: 20110214
  3. CARBOPLATIN [Suspect]
     Indication: OVARIAN EPITHELIAL CANCER
     Dosage: DOSE: AUC: 6 ON DAY 1 (CYCLE 1-6), LAST DOSE PRIOR TO SAE: 29 MARCH 2011.
     Route: 042
     Dates: start: 20110214

REACTIONS (7)
  - STOMATITIS [None]
  - CONSTIPATION [None]
  - DEHYDRATION [None]
  - WHITE BLOOD CELL COUNT DECREASED [None]
  - HYPOALBUMINAEMIA [None]
  - NEUTROPHIL COUNT DECREASED [None]
  - LARGE INTESTINE PERFORATION [None]
